FAERS Safety Report 24788846 (Version 1)
Quarter: 2024Q4

REPORT INFORMATION
  Report Type: Spontaneous
  Country: NL (occurrence: NL)
  Receive Date: 20241230
  Receipt Date: 20241230
  Transmission Date: 20250114
  Serious: Yes (Other)
  Sender: ABBVIE
  Company Number: None

PATIENT
  Age: 63 Year
  Sex: Male

DRUGS (1)
  1. ESCITALOPRAM [Suspect]
     Active Substance: ESCITALOPRAM OXALATE
     Indication: Post-traumatic stress disorder
     Dosage: TABLET 15 MG
     Route: 065
     Dates: start: 20230301

REACTIONS (3)
  - Product use in unapproved indication [Unknown]
  - Nightmare [Recovering/Resolving]
  - Product substitution issue [Unknown]
